FAERS Safety Report 6921001-5 (Version None)
Quarter: 2010Q3

REPORT INFORMATION
  Report Type: 
  Country: None (occurrence: None)
  Receive Date: 20100812
  Receipt Date: 20100803
  Transmission Date: 20110219
  Serious: Yes (Death, Hospitalization)
  Sender: FDA-Public Use
  Company Number: GB-ROCHE-688815

PATIENT
  Age: 60 Year
  Sex: Female

DRUGS (10)
  1. CAPECITABINE [Suspect]
     Dosage: DOSAGES REPORTED AS 1/ 1 CYCLICAL
     Route: 048
     Dates: start: 20090821
  2. CAPECITABINE [Suspect]
     Dosage: DOSAGES REPORTED AS 1/ 1 CYCLICAL
     Route: 048
     Dates: start: 20091016
  3. OXALIPLATIN [Suspect]
     Dosage: DOSAGES REPORTED AS 1/ 1 CYCLICAL
     Route: 041
     Dates: start: 20090821, end: 20090821
  4. OXALIPLATIN [Suspect]
     Dosage: DOSAGES REPORTED AS 1/ 1 CYCLICAL
     Route: 041
     Dates: start: 20091016, end: 20091016
  5. ADCAL [Concomitant]
  6. ALENDRONIC ACID [Concomitant]
  7. AMLODIPINE [Concomitant]
     Dates: end: 20091027
  8. AMOXICILLIN [Concomitant]
     Dates: start: 20090926, end: 20091001
  9. ASPIRIN [Concomitant]
  10. SIMVASTATIN [Concomitant]

REACTIONS (6)
  - DISEASE PROGRESSION [None]
  - DYSPNOEA [None]
  - FEMORAL ARTERY EMBOLISM [None]
  - PERIPHERAL ISCHAEMIA [None]
  - PULMONARY EMBOLISM [None]
  - UROSEPSIS [None]
